FAERS Safety Report 25494149 (Version 1)
Quarter: 2025Q2

REPORT INFORMATION
  Report Type: Report from Study
  Country: CA (occurrence: None)
  Receive Date: 20250630
  Receipt Date: 20250630
  Transmission Date: 20250716
  Serious: Yes (Hospitalization, Other)
  Sender: ORION
  Company Number: CA-PFIZER INC-202500127169

PATIENT
  Sex: Female

DRUGS (24)
  1. METHOTREXATE [Suspect]
     Active Substance: METHOTREXATE
     Indication: Product used for unknown indication
  2. ACTEMRA [Suspect]
     Active Substance: TOCILIZUMAB
     Indication: Vasculitis
  3. ACTEMRA [Suspect]
     Active Substance: TOCILIZUMAB
     Indication: Giant cell arteritis
  4. ACTEMRA [Suspect]
     Active Substance: TOCILIZUMAB
  5. ACTEMRA [Suspect]
     Active Substance: TOCILIZUMAB
  6. ATIVAN [Concomitant]
     Active Substance: LORAZEPAM
  7. ATORVASTATIN [Concomitant]
     Active Substance: ATORVASTATIN
  8. CALCIUM [Concomitant]
     Active Substance: CALCIUM
  9. DORZOLAMIDE [Concomitant]
     Active Substance: DORZOLAMIDE
  10. EMOLAX [MACROGOL 3350] [Concomitant]
  11. FLUCONAZOLE [Concomitant]
     Active Substance: FLUCONAZOLE
  12. HUMALOG [Concomitant]
     Active Substance: INSULIN LISPRO
  13. INSULIN HUMAN [Concomitant]
     Active Substance: INSULIN HUMAN
  14. INSULIN NOS [Concomitant]
     Active Substance: INSULIN NOS
  15. POLYETHYLENE GLYCOL 400\PROPYLENE GLYCOL [Concomitant]
     Active Substance: POLYETHYLENE GLYCOL 400\PROPYLENE GLYCOL
  16. METFORMIN [Concomitant]
     Active Substance: METFORMIN HYDROCHLORIDE
  17. PANTOPRAZOLE SODIUM [Concomitant]
     Active Substance: PANTOPRAZOLE SODIUM
  18. PERINDOPRIL [Concomitant]
     Active Substance: PERINDOPRIL
  19. PREDNISONE [Concomitant]
     Active Substance: PREDNISONE
  20. PREDNISONE [Concomitant]
     Active Substance: PREDNISONE
  21. PROLIA [Concomitant]
     Active Substance: DENOSUMAB
     Dosage: CYCLIC
  22. QUETIAPINE [Concomitant]
     Active Substance: QUETIAPINE
  23. RISEDRONATE SODIUM [Concomitant]
     Active Substance: RISEDRONATE SODIUM
  24. ZOPICLONE [Concomitant]
     Active Substance: ZOPICLONE

REACTIONS (5)
  - Blindness [Unknown]
  - Breast cancer [Unknown]
  - C-reactive protein increased [Unknown]
  - Headache [Unknown]
  - Red blood cell sedimentation rate increased [Unknown]
